FAERS Safety Report 7320762-3 (Version None)
Quarter: 2011Q1

REPORT INFORMATION
  Report Type: 
  Country: None (occurrence: None)
  Receive Date: 20110228
  Receipt Date: 20110216
  Transmission Date: 20110831
  Serious: Yes (Other)
  Sender: FDA-Public Use
  Company Number: CH-ELI_LILLY_AND_COMPANY-CH201102004894

PATIENT
  Age: 69 Year
  Sex: Female
  Weight: 50 kg

DRUGS (8)
  1. TIATRAL /00002701/ [Concomitant]
     Indication: PROPHYLAXIS
     Dosage: 100 MG, DAILY IN THE MORNING(1/D)
     Route: 048
  2. SORTIS [Concomitant]
     Indication: HYPERCHOLESTEROLAEMIA
     Dosage: 40 MG, DAILY IN THE EVENING(1/D)
     Route: 048
  3. CALCIUM-SANDOZ D3 FF [Concomitant]
     Indication: OSTEOPOROSIS
     Dosage: 1 D/F, EACH MORNING
     Route: 048
  4. NOVALGIN [Concomitant]
     Indication: PAIN
     Dosage: 500 MG, AS NEEDED
     Route: 048
  5. FORTEO [Suspect]
     Indication: OSTEOPOROSIS
     Dosage: 20 UG, DAILY (1/D)
     Route: 058
     Dates: start: 20100520
  6. OMEPRAZOLE [Concomitant]
     Indication: DYSPEPSIA
     Dosage: 20 MG, DAILY IN THE EVENING (1/D)
     Route: 048
     Dates: start: 20040101
  7. XALATAN [Concomitant]
     Indication: EYE DISORDER
     Dosage: 0.005 %, EACH EVENING IN EACH EYE
     Route: 047
  8. OXYCONTIN [Concomitant]
     Indication: PAIN
     Dosage: 10 MG, AS NEEDED
     Route: 048

REACTIONS (1)
  - SPINAL FRACTURE [None]
